FAERS Safety Report 20219155 (Version 1)
Quarter: 2021Q4

REPORT INFORMATION
  Report Type: Spontaneous
  Country: GB (occurrence: GB)
  Receive Date: 20211222
  Receipt Date: 20211222
  Transmission Date: 20220303
  Serious: Yes (Other)
  Sender: FDA-Public Use
  Company Number: None

PATIENT
  Age: 17 Year
  Sex: Female

DRUGS (32)
  1. DOCETAXEL [Suspect]
     Active Substance: DOCETAXEL
     Indication: Desmoplastic small round cell tumour
     Dosage: 3 LINES OF CHEMOTHERAPY
     Route: 065
  2. DOCETAXEL [Suspect]
     Active Substance: DOCETAXEL
     Dosage: UNK
  3. DOXORUBICIN HYDROCHLORIDE [Suspect]
     Active Substance: DOXORUBICIN HYDROCHLORIDE
     Indication: Desmoplastic small round cell tumour
     Dosage: 1 UNIT 4 CYCLES
     Route: 065
  4. GEMCITABINE HYDROCHLORIDE [Suspect]
     Active Substance: GEMCITABINE HYDROCHLORIDE
     Indication: Desmoplastic small round cell tumour
     Dosage: 3 LINES OF CHEMOTHERAPY
     Route: 065
  5. TOPOTECAN HYDROCHLORIDE [Suspect]
     Active Substance: TOPOTECAN HYDROCHLORIDE
     Indication: Desmoplastic small round cell tumour
     Dosage: 3 LINES OF CHEMOTHERAPY
     Route: 065
  6. TOPOTECAN HYDROCHLORIDE [Suspect]
     Active Substance: TOPOTECAN HYDROCHLORIDE
     Dosage: UNK
  7. VINCRISTINE SULFATE [Suspect]
     Active Substance: VINCRISTINE SULFATE
     Indication: Desmoplastic small round cell tumour
     Dosage: THREE LINES OF CHEMOTHERAPY;
     Route: 042
  8. VINCRISTINE SULFATE [Suspect]
     Active Substance: VINCRISTINE SULFATE
     Dosage: 1 IU, THREE LINES OF CHEMOTHERAPY
     Route: 065
  9. VINCRISTINE SULFATE [Suspect]
     Active Substance: VINCRISTINE SULFATE
     Dosage: 1 CYCLICAL, THREE LINES OF CHEMOTHERAPY
     Route: 065
  10. VINCRISTINE SULFATE [Suspect]
     Active Substance: VINCRISTINE SULFATE
     Dosage: 1 IU CYCLICAL
     Route: 042
  11. VINCRISTINE SULFATE [Suspect]
     Active Substance: VINCRISTINE SULFATE
     Dosage: 1 UNIT,4 CYCLES
     Route: 042
  12. VINCRISTINE SULFATE [Suspect]
     Active Substance: VINCRISTINE SULFATE
     Dosage: 1 UNIT, IVA 5 CYCLES
     Route: 042
  13. VINORELBINE TARTRATE [Suspect]
     Active Substance: VINORELBINE TARTRATE
     Indication: Desmoplastic small round cell tumour
     Dosage: 1 UNIT,4 CYCLES; MAINTENANCE THERAPY
     Route: 065
  14. VINORELBINE TARTRATE [Suspect]
     Active Substance: VINORELBINE TARTRATE
     Dosage: 1 UNIT,4 CYCLES
     Route: 065
  15. ACTINOMYCIN D [Suspect]
     Active Substance: DACTINOMYCIN
     Indication: Desmoplastic small round cell tumour
     Dosage: IVA 5 CYCLES
     Route: 042
  16. ACTINOMYCIN D [Suspect]
     Active Substance: DACTINOMYCIN
     Dosage: 4 CYCLES
     Route: 065
  17. CYCLOPHOSPHAMIDE [Suspect]
     Active Substance: CYCLOPHOSPHAMIDE
     Indication: Desmoplastic small round cell tumour
     Dosage: 4 CYCLES, MAINTENANCE THERAPY
     Route: 065
  18. CYCLOPHOSPHAMIDE [Suspect]
     Active Substance: CYCLOPHOSPHAMIDE
     Dosage: 3 LINES OF CHEMOTHERAPY
     Route: 065
  19. IFOSFAMIDE [Suspect]
     Active Substance: IFOSFAMIDE
     Indication: Desmoplastic small round cell tumour
     Dosage: 4 CYCLES
     Route: 065
  20. IFOSFAMIDE [Suspect]
     Active Substance: IFOSFAMIDE
     Dosage: 4 CYCLES
     Route: 065
  21. IFOSFAMIDE [Suspect]
     Active Substance: IFOSFAMIDE
     Dosage: 1 UNIT,IVA 5 CYCLES
     Route: 065
  22. IFOSFAMIDE [Suspect]
     Active Substance: IFOSFAMIDE
     Dosage: 1 IU
     Route: 065
  23. ONIVYDE [Suspect]
     Active Substance: IRINOTECAN HYDROCHLORIDE
     Indication: Desmoplastic small round cell tumour
     Dosage: 3 LINES OF CHEMOTHERAPY
     Route: 065
  24. ONIVYDE [Suspect]
     Active Substance: IRINOTECAN HYDROCHLORIDE
     Dosage: UNK
  25. ONIVYDE [Suspect]
     Active Substance: IRINOTECAN HYDROCHLORIDE
     Dosage: 3 LINES OF CHEMOTHERAPY  UNK
  26. TEMOZOLOMIDE [Suspect]
     Active Substance: TEMOZOLOMIDE
     Indication: Desmoplastic small round cell tumour
     Dosage: 3 LINES OF CHEMOTHERAPY
     Route: 065
  27. TEMOZOLOMIDE [Suspect]
     Active Substance: TEMOZOLOMIDE
     Dosage: UNK
  28. CYCLIZINE [Concomitant]
     Active Substance: CYCLIZINE
     Dosage: UNK
     Route: 065
  29. MELATONIN [Concomitant]
     Active Substance: MELATONIN
     Dosage: UNK,
     Route: 065
  30. ONDANSETRON [Concomitant]
     Active Substance: ONDANSETRON
     Dosage: UNK
     Route: 065
  31. PAZOPANIB [Concomitant]
     Active Substance: PAZOPANIB
     Dosage: UNK
     Route: 065
  32. SULFAMETHOXAZOLE\TRIMETHOPRIM [Concomitant]
     Active Substance: SULFAMETHOXAZOLE\TRIMETHOPRIM
     Dosage: UNK
     Route: 065

REACTIONS (4)
  - Ascites [Recovering/Resolving]
  - Neoplasm progression [Unknown]
  - Off label use [Unknown]
  - Off label use [Unknown]

NARRATIVE: CASE EVENT DATE: 20170801
